FAERS Safety Report 7875202-2 (Version None)
Quarter: 2011Q4

REPORT INFORMATION
  Report Type: 
  Country: None (occurrence: None)
  Receive Date: 20111031
  Receipt Date: 20111021
  Transmission Date: 20120403
  Serious: Yes (Other)
  Sender: FDA-Public Use
  Company Number: JP-ASTELLAS-2011JP006362

PATIENT
  Sex: Female
  Weight: 53.8 kg

DRUGS (19)
  1. LIPITOR [Concomitant]
     Indication: DYSLIPIDAEMIA
     Dosage: 10 MG, UID/QD
     Route: 048
     Dates: start: 20101025
  2. PURSENNID [Concomitant]
     Indication: CONSTIPATION
     Dosage: 36 MG, UID/QD
     Route: 048
     Dates: start: 20100924
  3. ALLOPURINOL [Concomitant]
     Indication: HYPERURICAEMIA
     Dosage: 100 MG, UID/QD
     Route: 048
     Dates: start: 20110428, end: 20110511
  4. PROGRAF [Suspect]
     Indication: LUPUS NEPHRITIS
     Dosage: 3 MG, UID/QD
     Route: 048
     Dates: start: 20110714, end: 20110810
  5. SULFAMETHOXAZOLE [Concomitant]
     Indication: URINARY TRACT INFECTION
     Dosage: 2 DF, 3XWEEKLY
     Route: 048
     Dates: start: 20101007, end: 20110810
  6. SULFAMETHOXAZOLE [Concomitant]
     Dosage: UNK
     Route: 048
     Dates: start: 20110811, end: 20110817
  7. LANSOPRAZOLE [Concomitant]
     Indication: GASTROOESOPHAGEAL REFLUX DISEASE
     Dosage: 15 MG, UID/QD
     Route: 048
     Dates: start: 20101007
  8. SULFAMETHOXAZOLE [Concomitant]
     Dosage: UNK
     Route: 048
     Dates: start: 20110818
  9. ISONIAZID [Concomitant]
     Indication: ANTIBIOTIC PROPHYLAXIS
     Dosage: 200 MG, UID/QD
     Route: 048
     Dates: start: 20101007
  10. PYDOXAL [Concomitant]
     Indication: ANTIBIOTIC PROPHYLAXIS
     Dosage: 10 MG, BID
     Route: 048
     Dates: start: 20101007
  11. FULSTAN [Concomitant]
     Indication: HYPOPHOSPHATAEMIA
     Dosage: 0.45 UG, UID/QD
     Route: 048
     Dates: start: 20101113, end: 20110101
  12. ALLOPURINOL [Concomitant]
     Dosage: 50 MG, UID/QD
     Route: 048
     Dates: start: 20110512, end: 20110615
  13. ALLOPURINOL [Concomitant]
     Dosage: 100 MG, UID/QD
     Route: 048
     Dates: start: 20110616, end: 20110713
  14. PREDNISOLONE [Concomitant]
     Indication: LUPUS NEPHRITIS
     Dosage: 15 MG, UID/QD
     Route: 048
     Dates: start: 20101007
  15. CLARITHROMYCIN [Concomitant]
     Indication: BRONCHITIS
     Dosage: 200 MG, BID
     Route: 048
     Dates: start: 20101007
  16. SALMETEROL/FLUTICASONPROPIONAAT [Concomitant]
     Indication: ASTHMA
     Dosage: UNK
     Route: 055
     Dates: start: 20100512
  17. ALLOPURINOL [Concomitant]
     Dosage: 50 MG, UID/QD
     Route: 048
     Dates: start: 20110811, end: 20110817
  18. FULSTAN [Concomitant]
     Dosage: 0.3 UG, UID/QD
     Route: 048
     Dates: start: 20110101
  19. ALLOPURINOL [Concomitant]
     Dosage: 50 MG, UID/QD
     Route: 048
     Dates: start: 20110915

REACTIONS (2)
  - RENAL DISORDER [None]
  - HYPERURICAEMIA [None]
